FAERS Safety Report 21355948 (Version 3)
Quarter: 2022Q4

REPORT INFORMATION
  Report Type: Spontaneous
  Country: AR (occurrence: AR)
  Receive Date: 20220920
  Receipt Date: 20221012
  Transmission Date: 20230112
  Serious: Yes (Death, Life-Threatening, Other)
  Sender: FDA-Public Use
  Company Number: AR-AMGEN-ARGSP2022159500

PATIENT
  Age: 4 Year
  Sex: Female
  Weight: 16.5 kg

DRUGS (9)
  1. AVSOLA [Suspect]
     Active Substance: INFLIXIMAB-AXXQ
     Indication: Colitis ulcerative
     Dosage: 100 MILLIGRAM DILUTED IN 125ML OF 0.9% SODIUM CHLORIDE SOLUTION (6MG/KG)
     Route: 040
     Dates: start: 20220404
  2. AVSOLA [Suspect]
     Active Substance: INFLIXIMAB-AXXQ
     Dosage: 100 MILLIGRAM DILUTED IN 125ML OF 0.9% SODIUM CHLORIDE SOLUTION (6MG/KG)
     Route: 040
     Dates: start: 20220408
  3. AVSOLA [Suspect]
     Active Substance: INFLIXIMAB-AXXQ
     Dosage: 100 MILLIGRAM DILUTED IN 125ML OF 0.9% SODIUM CHLORIDE SOLUTION (6MG/KG)
     Route: 040
     Dates: start: 20220506
  4. AVSOLA [Suspect]
     Active Substance: INFLIXIMAB-AXXQ
     Dosage: 100 MILLIGRAM DILUTED IN 125ML OF 0.9% SODIUM CHLORIDE SOLUTION (6MG/KG)
     Route: 040
     Dates: start: 20220306
  5. AVSOLA [Suspect]
     Active Substance: INFLIXIMAB-AXXQ
     Dosage: 100 MILLIGRAM DILUTED IN 125ML OF 0.9% SODIUM CHLORIDE SOLUTION (6MG/KG)
     Route: 040
     Dates: start: 20220107
  6. MESALAMINE [Concomitant]
     Active Substance: MESALAMINE
     Dosage: UNK
  7. AZATHIOPRINE [Concomitant]
     Active Substance: AZATHIOPRINE
     Dosage: UNK
  8. DIPHENHYDRAMINE [Concomitant]
     Active Substance: DIPHENHYDRAMINE
  9. HYDROCORTISONE [Concomitant]
     Active Substance: HYDROCORTISONE

REACTIONS (3)
  - Respiratory arrest [Fatal]
  - Haemorrhagic stroke [Fatal]
  - Off label use [Unknown]

NARRATIVE: CASE EVENT DATE: 20220404
